FAERS Safety Report 8953084 (Version 2)
Quarter: 2013Q1

REPORT INFORMATION
  Report Type: Spontaneous
  Country: US (occurrence: US)
  Receive Date: 20121205
  Receipt Date: 20130116
  Transmission Date: 20140127
  Serious: Yes (Hospitalization)
  Sender: FDA-Public Use
  Company Number: US-GILEAD-2012-0065778

PATIENT
  Sex: Male

DRUGS (4)
  1. LETAIRIS [Suspect]
     Indication: PULMONARY ARTERIAL HYPERTENSION
     Dosage: 10 MG, QD
     Route: 048
     Dates: start: 20120216
  2. LETAIRIS [Suspect]
     Indication: EMBOLISM
  3. LETAIRIS [Suspect]
     Indication: SLEEP APNOEA SYNDROME
  4. REVATIO [Concomitant]

REACTIONS (2)
  - Surgery [Unknown]
  - Back pain [Unknown]
